FAERS Safety Report 20001455 (Version 3)
Quarter: 2021Q4

REPORT INFORMATION
  Report Type: Spontaneous
  Country: JP (occurrence: None)
  Receive Date: 20211027
  Receipt Date: 20211208
  Transmission Date: 20220304
  Serious: Yes (Life-Threatening)
  Sender: FDA-Public Use
  Company Number: 2021A782680

PATIENT
  Age: 32 Year
  Sex: Female
  Weight: 61 kg

DRUGS (4)
  1. DAPAGLIFLOZIN [Suspect]
     Active Substance: DAPAGLIFLOZIN
     Indication: Type 1 diabetes mellitus
     Route: 048
     Dates: start: 20200324, end: 20210225
  2. DAPAGLIFLOZIN [Suspect]
     Active Substance: DAPAGLIFLOZIN
     Indication: Type 1 diabetes mellitus
     Route: 048
     Dates: start: 20210226, end: 20211008
  3. LEVEMIR [Concomitant]
     Active Substance: INSULIN DETEMIR
     Indication: Type 1 diabetes mellitus
     Dosage: 16 UNITS BEFORE BREAKFAST AND 13 UNITS BEFORE DINNER
     Route: 058
     Dates: start: 2004, end: 20200323
  4. HUMALOG [Concomitant]
     Active Substance: INSULIN LISPRO
     Indication: Type 1 diabetes mellitus
     Dosage: ABOUT 1 UNIT JUST BEFORE MEALS
     Route: 058
     Dates: start: 20211005

REACTIONS (2)
  - Ketoacidosis [Recovered/Resolved]
  - Weight increased [Unknown]

NARRATIVE: CASE EVENT DATE: 20211005
